FAERS Safety Report 16971031 (Version 3)
Quarter: 2019Q4

REPORT INFORMATION
  Report Type: Report from Study
  Country: NL (occurrence: NL)
  Receive Date: 20191029
  Receipt Date: 20191219
  Transmission Date: 20200122
  Serious: Yes (Hospitalization)
  Sender: FDA-Public Use
  Company Number: NL-VERTEX PHARMACEUTICALS-2019-009178

PATIENT
  Age: 52 Year
  Sex: Female
  Weight: 75 kg

DRUGS (24)
  1. PARACETAMOL [Concomitant]
     Active Substance: ACETAMINOPHEN
     Indication: PAIN
     Dosage: 500 MG, PRN
  2. METOPROLOL. [Concomitant]
     Active Substance: METOPROLOL
     Indication: HYPERTENSION
     Dosage: 50 MG, QD
  3. FLUOXETINE [Concomitant]
     Active Substance: FLUOXETINE HYDROCHLORIDE
     Indication: PANIC DISORDER
     Dosage: 20 MG, TID
  4. VX-661/VX-770 [Suspect]
     Active Substance: IVACAFTOR\TEZACAFTOR
  5. AZTREONAM. [Concomitant]
     Active Substance: AZTREONAM
     Indication: BACTERIAL DISEASE CARRIER
     Dosage: 75 MG, BID
  6. HYPERTONIC SALINE SOLUTION [Concomitant]
     Active Substance: SODIUM CHLORIDE
     Dosage: UNK, QD
  7. CALCIUM + D3 [CALCIUM;COLECALCIFEROL] [Concomitant]
     Indication: OSTEOPOROSIS
     Dosage: 1000 MG, QD
  8. SALBUTAMOL [Concomitant]
     Active Substance: ALBUTEROL
     Indication: PULMONARY CONGESTION
     Dosage: 200MCG, PRN, QID
  9. FLUTICASONE. [Concomitant]
     Active Substance: FLUTICASONE
     Indication: SINUS DISORDER
     Dosage: 27.5MCG, BID
  10. PERINDOPRIL [Concomitant]
     Active Substance: PERINDOPRIL
     Indication: HYPERTENSION
     Dosage: 4 MG, BID
  11. AZITHROMYCIN ANHYDROUS. [Concomitant]
     Active Substance: AZITHROMYCIN ANHYDROUS
     Indication: BACTERIAL DISEASE CARRIER
     Dosage: 250 MG, QD
  12. VX-445 [Suspect]
     Active Substance: ELEXACAFTOR
     Indication: CYSTIC FIBROSIS
     Dosage: UNK
     Route: 048
     Dates: start: 20190328
  13. TEMAZEPAM. [Concomitant]
     Active Substance: TEMAZEPAM
     Indication: SLEEP DISORDER
     Dosage: 10 MG, QD
  14. INSULIN LISPRO [Concomitant]
     Active Substance: INSULIN LISPRO
     Indication: CYSTIC FIBROSIS RELATED DIABETES
     Dosage: PRN
  15. PANCREATIN [Concomitant]
     Active Substance: PANCRELIPASE
     Dosage: PRN
  16. METFORMINE [METFORMIN] [Concomitant]
     Active Substance: METFORMIN HYDROCHLORIDE
     Indication: CYSTIC FIBROSIS RELATED DIABETES
     Dosage: 500 MG, TID
  17. DICLOFENAC [Concomitant]
     Active Substance: DICLOFENAC
     Indication: PAIN
     Dosage: UNK, PRN
  18. FLUTICASONE. [Concomitant]
     Active Substance: FLUTICASONE
     Indication: INFLAMMATION
     Dosage: 500MCG, BID
  19. TIOTROPIUM [Concomitant]
     Active Substance: TIOTROPIUM
     Indication: PULMONARY CONGESTION
     Dosage: 5MCG, QD
  20. PREDNISOLON [PREDNISOLONE] [Concomitant]
     Active Substance: PREDNISOLONE
     Indication: ADRENOCORTICAL INSUFFICIENCY ACUTE
     Dosage: 10 MG, QD
  21. DEXTRAN [Concomitant]
     Active Substance: DEXTRAN
  22. ESOMEPRAZOL [ESOMEPRAZOLE] [Concomitant]
     Active Substance: ESOMEPRAZOLE
     Dosage: 40 MG, BID
  23. ADEK [Concomitant]
     Indication: PANCREATIC FAILURE
     Dosage: 300 MG, QD
  24. HYPROMELLOSE [Concomitant]
     Active Substance: HYPROMELLOSES
     Indication: DRY EYE
     Dosage: 1 DROP, QID

REACTIONS (1)
  - Arrhythmia [Recovering/Resolving]

NARRATIVE: CASE EVENT DATE: 20190923
